FAERS Safety Report 9697281 (Version 1)
Quarter: 2013Q4

REPORT INFORMATION
  Report Type: Spontaneous
  Country: US (occurrence: None)
  Receive Date: 20131119
  Receipt Date: 20131119
  Transmission Date: 20140711
  Serious: No
  Sender: FDA-Public Use
  Company Number: None

PATIENT
  Age: 50 Year
  Sex: Female

DRUGS (8)
  1. MEDROXYPROGESTERONE [Suspect]
     Indication: UTERINE LEIOMYOMA
     Route: 048
     Dates: start: 20130622, end: 20131023
  2. RANITIDINE [Concomitant]
  3. VITAMIN-C [Concomitant]
  4. ASPIRIN [Concomitant]
  5. L-LYSINE [Concomitant]
  6. VITAMIN-D3 [Concomitant]
  7. VITAMIN-B6 [Concomitant]
  8. VITAMIN-E [Concomitant]

REACTIONS (7)
  - Headache [None]
  - Weight increased [None]
  - Dizziness [None]
  - Somnolence [None]
  - Breast pain [None]
  - Dysstasia [None]
  - Vaginal haemorrhage [None]
